FAERS Safety Report 8066681-9 (Version None)
Quarter: 2012Q1

REPORT INFORMATION
  Report Type: 
  Country: None (occurrence: None)
  Receive Date: 20120124
  Receipt Date: 20120116
  Transmission Date: 20120608
  Serious: Yes (Hospitalization)
  Sender: FDA-Public Use
  Company Number: US-BAYER-2011-074971

PATIENT
  Age: 22 Year
  Sex: Female
  Weight: 108.84 kg

DRUGS (3)
  1. LORTAB [Concomitant]
  2. INSULIN [Concomitant]
  3. YAZ [Suspect]
     Dosage: UNK
     Dates: start: 20080601, end: 20100101

REACTIONS (5)
  - CHOLECYSTITIS CHRONIC [None]
  - CHOLELITHIASIS [None]
  - PAIN [None]
  - INJURY [None]
  - BILE DUCT STONE [None]
